FAERS Safety Report 8850295 (Version 1)
Quarter: 2012Q4

REPORT INFORMATION
  Report Type: 
  Country: US (occurrence: US)
  Receive Date: 20121019
  Receipt Date: 20121019
  Transmission Date: 20130627
  Serious: Yes (Other)
  Sender: FDA-Public Use
  Company Number: US-PFIZER INC-2012259796

PATIENT
  Sex: Female

DRUGS (2)
  1. ALPRAZOLAM [Suspect]
     Dosage: UNK
  2. ARMOUR THYROID [Suspect]
     Dosage: UNK

REACTIONS (4)
  - Apparent death [Unknown]
  - Drug dispensing error [Unknown]
  - Feeling abnormal [Unknown]
  - Drug ineffective [Unknown]
